FAERS Safety Report 9198633 (Version 1)
Quarter: 2013Q1

REPORT INFORMATION
  Report Type: Spontaneous
  Country: US (occurrence: None)
  Receive Date: 20130327
  Receipt Date: 20130327
  Transmission Date: 20140127
  Serious: No
  Sender: FDA-Public Use
  Company Number: None

PATIENT
  Sex: Female

DRUGS (1)
  1. BUPROPION XL 300MG 24HR ER TAB [Suspect]
     Indication: MAJOR DEPRESSION
     Route: 048

REACTIONS (3)
  - Depression [None]
  - Product substitution issue [None]
  - Therapeutic response unexpected with drug substitution [None]
